FAERS Safety Report 8121687-6 (Version None)
Quarter: 2012Q1

REPORT INFORMATION
  Report Type: 
  Country: None (occurrence: None)
  Receive Date: 20120206
  Receipt Date: 20120125
  Transmission Date: 20120608
  Serious: Yes (Other)
  Sender: FDA-Public Use
  Company Number: 2012P1002594

PATIENT
  Age: 71 Year
  Sex: Female
  Weight: 61.2356 kg

DRUGS (3)
  1. DEXEDRINE [Suspect]
     Dosage: 20 MG PO
     Route: 048
     Dates: start: 19670101, end: 20120111
  2. DEXEDRINE [Suspect]
     Dosage: 20 MG PO
     Route: 048
     Dates: start: 20120116
  3. DEXEDRINE [Suspect]
     Indication: SLEEP APNOEA SYNDROME

REACTIONS (7)
  - TREATMENT NONCOMPLIANCE [None]
  - HYPERSOMNIA [None]
  - DEPRESSION [None]
  - SUICIDAL IDEATION [None]
  - DEPRESSED MOOD [None]
  - ACTIVITIES OF DAILY LIVING IMPAIRED [None]
  - DRUG INEFFECTIVE [None]
